FAERS Safety Report 20516527 (Version 1)
Quarter: 2022Q1

REPORT INFORMATION
  Report Type: Report from Study
  Country: US (occurrence: US)
  Receive Date: 20220225
  Receipt Date: 20220225
  Transmission Date: 20220423
  Serious: Yes (Death, Hospitalization, Other)
  Sender: FDA-Public Use
  Company Number: US-ABBVIE-22K-163-4225225-00

PATIENT
  Age: 88 Year
  Sex: Male
  Weight: 61.290 kg

DRUGS (3)
  1. IMBRUVICA [Suspect]
     Active Substance: IBRUTINIB
     Indication: Chronic lymphocytic leukaemia
     Route: 048
     Dates: start: 2021, end: 20211201
  2. MODERNA COVID-19 VACCINE [Concomitant]
     Active Substance: ELASOMERAN
     Indication: COVID-19 immunisation
     Dosage: 1ST DOSE
     Route: 030
     Dates: start: 202106, end: 202106
  3. MODERNA COVID-19 VACCINE [Concomitant]
     Active Substance: ELASOMERAN
     Dosage: 2ND DOSE
     Route: 030
     Dates: start: 202107, end: 202107

REACTIONS (9)
  - SARS-CoV-2 test positive [Fatal]
  - Respiratory failure [Fatal]
  - Hypoxia [Fatal]
  - Metastases to central nervous system [Fatal]
  - Haemorrhage intracranial [Fatal]
  - Pneumonia [Recovered/Resolved]
  - COVID-19 [Not Recovered/Not Resolved]
  - Malaise [Unknown]
  - Urinary tract infection [Recovered/Resolved]

NARRATIVE: CASE EVENT DATE: 20211201
